FAERS Safety Report 6766373-X (Version None)
Quarter: 2010Q2

REPORT INFORMATION
  Report Type: 
  Country: None (occurrence: None)
  Receive Date: 20100611
  Receipt Date: 20100604
  Transmission Date: 20101027
  Serious: Yes (Life-Threatening)
  Sender: FDA-Public Use
  Company Number: GB-TYCO HEALTHCARE/MALLINCKRODT-T201001379

PATIENT
  Age: 64 Year
  Sex: Male

DRUGS (2)
  1. OPTIRAY 350 [Suspect]
     Indication: COMPUTERISED TOMOGRAM
     Dosage: 100 ML, SINGLE
     Route: 042
     Dates: start: 20100603, end: 20100603
  2. SALINE                             /00075401/ [Concomitant]
     Dosage: 0.9 %, SINGLE

REACTIONS (3)
  - CHEST DISCOMFORT [None]
  - RASH [None]
  - WHEEZING [None]
